FAERS Safety Report 26138493 (Version 1)
Quarter: 2025Q4

REPORT INFORMATION
  Report Type: Spontaneous
  Country: EU (occurrence: EU)
  Receive Date: 20251210
  Receipt Date: 20251210
  Transmission Date: 20260117
  Serious: Yes (Hospitalization)
  Sender: SANDOZ
  Company Number: EU-SANDOZ-SDZ2025DE093149

PATIENT
  Sex: Male

DRUGS (4)
  1. BIMZELX [Suspect]
     Active Substance: BIMEKIZUMAB-BKZX
     Indication: Product used for unknown indication
     Dosage: 160 MG
     Route: 065
     Dates: start: 20240522, end: 20240522
  2. NAPROXEN [Suspect]
     Active Substance: NAPROXEN
     Dosage: 125 MG
     Route: 065
     Dates: start: 20240324
  3. NAPROXEN [Suspect]
     Active Substance: NAPROXEN
     Dosage: 125 MG
     Route: 065
     Dates: start: 20240601
  4. NAPROXEN [Suspect]
     Active Substance: NAPROXEN
     Indication: Product used for unknown indication
     Dosage: 250 MG
     Route: 065
     Dates: start: 20240601

REACTIONS (1)
  - Arthralgia [Unknown]

NARRATIVE: CASE EVENT DATE: 20250320
